FAERS Safety Report 11264768 (Version 1)
Quarter: 2015Q3

REPORT INFORMATION
  Report Type: Spontaneous
  Country: FR (occurrence: None)
  Receive Date: 20150709
  Receipt Date: 20150709
  Transmission Date: 20151125
  Serious: Yes (Hospitalization)
  Sender: FDA-Public Use
  Company Number: NL01PV15_39254

PATIENT
  Age: 86 Year
  Sex: Female

DRUGS (12)
  1. ZOLPIDEM [Suspect]
     Active Substance: ZOLPIDEM\ZOLPIDEM TARTRATE
     Indication: PRODUCT USED FOR UNKNOWN INDICATION
     Route: 048
     Dates: end: 20150311
  2. CYMBALTA [Suspect]
     Active Substance: DULOXETINE HYDROCHLORIDE
     Indication: PRODUCT USED FOR UNKNOWN INDICATION
     Route: 048
     Dates: end: 20150311
  3. LEVOTHYROX (LEVOTHYROXINE SODIUM) [Concomitant]
     Active Substance: LEVOTHYROXINE SODIUM
  4. REPAGLINIDE. [Concomitant]
     Active Substance: REPAGLINIDE
  5. LANSOPRAZOLE. [Concomitant]
     Active Substance: LANSOPRAZOLE
  6. COVERSYL [Suspect]
     Active Substance: PERINDOPRIL
     Indication: HYPERTENSION
     Route: 048
     Dates: end: 20150311
  7. LASILIX /00032601/ (FUROSEMIDE) [Suspect]
     Active Substance: FUROSEMIDE
     Indication: PRODUCT USED FOR UNKNOWN INDICATION
     Route: 048
     Dates: end: 20150311
  8. FLUINDIONE [Concomitant]
     Active Substance: FLUINDIONE
  9. IXPRIM [Suspect]
     Active Substance: ACETAMINOPHEN\TRAMADOL HYDROCHLORIDE
     Indication: PRODUCT USED FOR UNKNOWN INDICATION
     Route: 048
     Dates: end: 20150311
  10. LYRICA [Suspect]
     Active Substance: PREGABALIN
     Indication: PRODUCT USED FOR UNKNOWN INDICATION
     Route: 048
     Dates: end: 20150311
  11. LANTUS [Concomitant]
     Active Substance: INSULIN GLARGINE
  12. CARDENSIEL (BISOPROLOL FUMARATE) [Concomitant]

REACTIONS (8)
  - Disorientation [None]
  - Psychomotor retardation [None]
  - Cognitive disorder [None]
  - Fall [None]
  - Orthostatic hypotension [None]
  - International normalised ratio increased [None]
  - Atrial fibrillation [None]
  - Confusional state [None]

NARRATIVE: CASE EVENT DATE: 20150309
